FAERS Safety Report 4520016-4 (Version None)
Quarter: 2004Q4

REPORT INFORMATION
  Report Type: 
  Country: None (occurrence: None)
  Receive Date: 20041201
  Receipt Date: 20041201
  Transmission Date: 20050328
  Serious: No
  Sender: FDA-Public Use
  Company Number: None

PATIENT
  Sex: Male

DRUGS (3)
  1. IFOSFAMIDE [Suspect]
     Indication: B PRECURSOR TYPE ACUTE LEUKAEMIA
     Dosage: IV
     Route: 042
     Dates: start: 20041004
  2. ZANTAC [Concomitant]
  3. BACTRIM [Concomitant]

REACTIONS (5)
  - AGITATION [None]
  - ATAXIA [None]
  - CONFUSIONAL STATE [None]
  - NEUROTOXICITY [None]
  - SOMNOLENCE [None]
